FAERS Safety Report 13463946 (Version 1)
Quarter: 2017Q2

REPORT INFORMATION
  Report Type: Spontaneous
  Country: US (occurrence: US)
  Receive Date: 20170420
  Receipt Date: 20170420
  Transmission Date: 20170830
  Serious: Yes (Other)
  Sender: FDA-Public Use
  Company Number: US-ROCHE-694446

PATIENT
  Age: 18 Year
  Sex: Male
  Weight: 95.3 kg

DRUGS (4)
  1. VENTOLIN [Concomitant]
     Active Substance: ALBUTEROL SULFATE
     Indication: ASTHMA
     Route: 065
  2. ACCUTANE [Suspect]
     Active Substance: ISOTRETINOIN
     Indication: ACNE
     Dosage: STRENGTH REPORTED AS 40 MG AND 20 MG
     Route: 065
  3. ACCUTANE [Suspect]
     Active Substance: ISOTRETINOIN
     Dosage: 40 MG IN THE MORNING AND 10 MG AT NIGHT
     Route: 065
  4. ACCUTANE [Suspect]
     Active Substance: ISOTRETINOIN
     Route: 065

REACTIONS (8)
  - Blood triglycerides increased [Unknown]
  - Aphthous ulcer [Unknown]
  - Blood cholesterol increased [Unknown]
  - Inflammatory bowel disease [Unknown]
  - Dry skin [Unknown]
  - Depression [Unknown]
  - Nail disorder [Unknown]
  - Colitis [Unknown]

NARRATIVE: CASE EVENT DATE: 20030611
